FAERS Safety Report 5636882-5 (Version None)
Quarter: 2008Q1

REPORT INFORMATION
  Report Type: 
  Country: None (occurrence: None)
  Receive Date: 20080225
  Receipt Date: 20080211
  Transmission Date: 20080703
  Serious: Yes (Other)
  Sender: FDA-Public Use
  Company Number: US-BAYER-200810182BCC

PATIENT
  Age: 78 Year
  Sex: Female
  Weight: 60 kg

DRUGS (3)
  1. ALKA SELTZER ORIGINAL EFFERVESCENT TABLETS [Suspect]
     Indication: NASOPHARYNGITIS
     Route: 048
     Dates: start: 20080107
  2. EVISTA [Concomitant]
  3. TRIMETHOPRIM [Concomitant]

REACTIONS (1)
  - PALPITATIONS [None]
